FAERS Safety Report 21631148 (Version 3)
Quarter: 2023Q1

REPORT INFORMATION
  Report Type: Report from Study
  Country: US (occurrence: US)
  Receive Date: 20221123
  Receipt Date: 20230315
  Transmission Date: 20230417
  Serious: No
  Sender: FDA-Public Use
  Company Number: US-ABBVIE-22K-163-4407507-00

PATIENT
  Age: 40 Year
  Sex: Female
  Weight: 63.502 kg

DRUGS (3)
  1. HUMIRA [Suspect]
     Active Substance: ADALIMUMAB
     Indication: Rheumatoid arthritis
     Dosage: CITRATE FREE
     Route: 058
  2. HUMIRA [Suspect]
     Active Substance: ADALIMUMAB
     Dosage: CITRATE FREE
     Route: 058
  3. Moderna [Concomitant]
     Indication: COVID-19 immunisation
     Dosage: FREQUENCY: ONCE
     Route: 030

REACTIONS (4)
  - Arthritis [Unknown]
  - Pain in extremity [Recovered/Resolved]
  - Burning sensation [Not Recovered/Not Resolved]
  - Arthralgia [Not Recovered/Not Resolved]

NARRATIVE: CASE EVENT DATE: 20220402
